FAERS Safety Report 8322251-6 (Version None)
Quarter: 2012Q2

REPORT INFORMATION
  Report Type: 
  Country: None (occurrence: None)
  Receive Date: 20120430
  Receipt Date: 20120423
  Transmission Date: 20120825
  Serious: Yes (Other)
  Sender: FDA-Public Use
  Company Number: IT-ABBOTT-12P-083-0929363-00

PATIENT
  Sex: Male

DRUGS (2)
  1. DEPAKENE [Suspect]
     Indication: HYDROCEPHALUS
     Dosage: 400MG DAILY
     Route: 048
     Dates: start: 20120101, end: 20120329
  2. CLONAZEPAM [Suspect]
     Indication: HYDROCEPHALUS
     Route: 048
     Dates: start: 20120101, end: 20120329

REACTIONS (1)
  - SOMNOLENCE [None]
